FAERS Safety Report 23868204 (Version 2)
Quarter: 2024Q2

REPORT INFORMATION
  Report Type: Report from Study
  Country: CO (occurrence: CO)
  Receive Date: 20240517
  Receipt Date: 20240523
  Transmission Date: 20240716
  Serious: Yes (Hospitalization)
  Sender: FDA-Public Use
  Company Number: CO-Eisai-EC-2024-165881

PATIENT
  Age: 67 Year
  Sex: Female
  Weight: 58.0 kg

DRUGS (2)
  1. LENVIMA [Suspect]
     Active Substance: LENVATINIB
     Indication: Thyroid cancer
     Route: 048
     Dates: start: 20240412, end: 20240517
  2. LENVIMA [Suspect]
     Active Substance: LENVATINIB
     Route: 048
     Dates: start: 20240519

REACTIONS (6)
  - Hypertension [Recovering/Resolving]
  - Discomfort [Recovering/Resolving]
  - Abdominal pain upper [Recovering/Resolving]
  - Diarrhoea [Recovering/Resolving]
  - Chills [Recovering/Resolving]
  - Tracheostomy infection [Recovering/Resolving]

NARRATIVE: CASE EVENT DATE: 20240512
